FAERS Safety Report 16968411 (Version 1)
Quarter: 2019Q4

REPORT INFORMATION
  Report Type: Spontaneous
  Country: LV (occurrence: LV)
  Receive Date: 20191029
  Receipt Date: 20191029
  Transmission Date: 20200122
  Serious: Yes (Other)
  Sender: FDA-Public Use
  Company Number: LV-TEVA-2019-LV-1127055

PATIENT
  Age: 60 Year
  Weight: 70 kg

DRUGS (4)
  1. DIAPREL MR [Concomitant]
     Active Substance: GLICLAZIDE
     Dosage: 60 MG
     Route: 048
  2. CONCOR COR 2,5 MG [Concomitant]
     Dosage: 5 MG
     Route: 048
  3. METFORMIN TEVA 1000 MG APVALKOTAS TABLETES [Suspect]
     Active Substance: METFORMIN HYDROCHLORIDE
     Indication: DIABETES MELLITUS
     Dosage: 1000 MG
     Route: 048
     Dates: start: 20190801
  4. L-THYROXIN BERLIN-CHEMIE [Concomitant]
     Route: 048

REACTIONS (1)
  - Rash [Recovering/Resolving]

NARRATIVE: CASE EVENT DATE: 20190801
